FAERS Safety Report 14142501 (Version 2)
Quarter: 2017Q4

REPORT INFORMATION
  Report Type: Report from Study
  Country: IT (occurrence: IT)
  Receive Date: 20171030
  Receipt Date: 20171112
  Transmission Date: 20180321
  Serious: Yes (Hospitalization)
  Sender: FDA-Public Use
  Company Number: IT-TEVA-820166ACC

PATIENT
  Age: 18 Year
  Sex: Female

DRUGS (6)
  1. RISPERIDONE TEVA - 1 MG COMPRESSE RIVESTITE CON FILM [Suspect]
     Active Substance: RISPERIDONE
     Indication: BIPOLAR DISORDER
     Dosage: 2 DOSAGE FORMS DAILY; 2 DF DAILY
     Route: 048
     Dates: start: 20170701, end: 20170913
  2. TACHIFLUDEC - POLVERE PER SOLUZIONE ORALE [Suspect]
     Active Substance: ACETAMINOPHEN\ASCORBIC ACID\PHENYLEPHRINE
     Indication: CATARRH
     Dosage: 1 DF AS NECESSARY
     Route: 048
     Dates: start: 20170908, end: 20170912
  3. CARBOLITHIUM - CAPSULE RIGIDE TEVA ITALIA S.R.L. [Concomitant]
     Indication: BIPOLAR DISORDER
     Route: 048
  4. CARBOLITHIUM - CAPSULE RIGIDE TEVA ITALIA S.R.L. [Concomitant]
     Route: 048
  5. EUTIROX - 50 MICROGRAMMI COMPRESSE [Concomitant]
     Indication: PRODUCT USED FOR UNKNOWN INDICATION
     Route: 048
  6. SERTRALINE HYDROCHLORIDE. [Concomitant]
     Active Substance: SERTRALINE HYDROCHLORIDE
     Indication: BIPOLAR DISORDER
     Route: 048

REACTIONS (2)
  - Liver disorder [Recovered/Resolved]
  - Torticollis [Recovered/Resolved]

NARRATIVE: CASE EVENT DATE: 20170912
